FAERS Safety Report 11228298 (Version 3)
Quarter: 2015Q4

REPORT INFORMATION
  Report Type: Report from Study
  Country: US (occurrence: US)
  Receive Date: 20150630
  Receipt Date: 20151019
  Transmission Date: 20160304
  Serious: Yes (Hospitalization, Other)
  Sender: FDA-Public Use
  Company Number: US-SA-2015SA093094

PATIENT
  Age: 66 Year
  Sex: Male

DRUGS (2)
  1. RITUXAN [Concomitant]
     Active Substance: RITUXIMAB
     Indication: MULTIPLE SCLEROSIS
     Dates: start: 20120101, end: 20150601
  2. LEMTRADA [Suspect]
     Active Substance: ALEMTUZUMAB
     Indication: MULTIPLE SCLEROSIS RELAPSE
     Route: 041
     Dates: start: 20150609, end: 20150613

REACTIONS (7)
  - Pneumonia [Recovering/Resolving]
  - Blood count abnormal [Unknown]
  - Heat stroke [Recovering/Resolving]
  - Cystitis [Recovering/Resolving]
  - Rash [Not Recovered/Not Resolved]
  - Fatigue [Unknown]
  - Urinary retention [Unknown]

NARRATIVE: CASE EVENT DATE: 2015
